FAERS Safety Report 10668252 (Version 1)
Quarter: 2014Q4

REPORT INFORMATION
  Report Type: Spontaneous
  Country: BR (occurrence: BR)
  Receive Date: 20141222
  Receipt Date: 20141222
  Transmission Date: 20150529
  Serious: Yes (Other)
  Sender: FDA-Public Use
  Company Number: BR-PFIZER INC-2014348218

PATIENT
  Age: 79 Year
  Sex: Female

DRUGS (1)
  1. DETRUSITOL LA [Suspect]
     Active Substance: TOLTERODINE TARTRATE
     Dosage: UNK
     Route: 048

REACTIONS (5)
  - Abasia [Unknown]
  - Arthropathy [Unknown]
  - Pain [Unknown]
  - Deafness [Unknown]
  - Musculoskeletal disorder [Unknown]
